FAERS Safety Report 5374542-9 (Version None)
Quarter: 2007Q2

REPORT INFORMATION
  Report Type: 
  Country: None (occurrence: None)
  Receive Date: 20070629
  Receipt Date: 20070620
  Transmission Date: 20071010
  Serious: Yes (Death, Hospitalization, Other)
  Sender: FDA-Public Use
  Company Number: US-AVENTIS-200715579GDDC

PATIENT
  Age: 65 Year
  Sex: Male

DRUGS (4)
  1. LEVOFLOXACIN [Suspect]
     Route: 041
  2. METRONIDAZOLE [Suspect]
  3. PIPERACILLIN [Suspect]
     Indication: SEPTIC SHOCK
  4. TAZOBACTAM [Suspect]
     Indication: SEPTIC SHOCK

REACTIONS (3)
  - CLOSTRIDIAL INFECTION [None]
  - RESPIRATORY FAILURE [None]
  - SEPTIC SHOCK [None]
